FAERS Safety Report 13031858 (Version 3)
Quarter: 2019Q1

REPORT INFORMATION
  Report Type: Spontaneous
  Country: US (occurrence: US)
  Receive Date: 20161215
  Receipt Date: 20190109
  Transmission Date: 20190417
  Serious: No
  Sender: FDA-Public Use
  Company Number: US-PFIZER INC-2016561907

PATIENT
  Age: 79 Year
  Sex: Female
  Weight: 65.77 kg

DRUGS (3)
  1. CELECOXIB. [Suspect]
     Active Substance: CELECOXIB
     Dosage: 200 MG, TWICE DAILY
     Route: 048
     Dates: start: 20161117, end: 20161130
  2. CELECOXIB. [Suspect]
     Active Substance: CELECOXIB
     Indication: ARTHRITIS
     Dosage: 200 MG,ONCE A DAY
     Route: 048
     Dates: start: 201611, end: 20161130
  3. LYRICA [Concomitant]
     Active Substance: PREGABALIN
     Indication: NEUROPATHY PERIPHERAL
     Dosage: UNK

REACTIONS (10)
  - Joint stiffness [Recovered/Resolved]
  - Joint swelling [Recovered/Resolved]
  - Pain in extremity [Recovered/Resolved]
  - Arthralgia [Recovered/Resolved]
  - Pain [Not Recovered/Not Resolved]
  - Asthenia [Not Recovered/Not Resolved]
  - Peripheral swelling [Recovered/Resolved]
  - Swelling [Recovered/Resolved]
  - Musculoskeletal pain [Recovered/Resolved]
  - Gait disturbance [Not Recovered/Not Resolved]

NARRATIVE: CASE EVENT DATE: 2016
